FAERS Safety Report 8990618 (Version 3)
Quarter: 2013Q3

REPORT INFORMATION
  Report Type: Spontaneous
  Country: PE (occurrence: PE)
  Receive Date: 20121228
  Receipt Date: 20130903
  Transmission Date: 20140515
  Serious: Yes (Other)
  Sender: FDA-Public Use
  Company Number: PE-GENZYME-CERZ-1002762

PATIENT
  Age: 20 Year
  Sex: Female
  Weight: 47 kg

DRUGS (3)
  1. CEREZYME [Suspect]
     Indication: GAUCHER^S DISEASE
     Dosage: 8.5 U/KG, Q2W
     Route: 042
     Dates: start: 19991107, end: 201307
  2. HIOSCINA [Concomitant]
     Indication: ABDOMINAL PAIN
     Dosage: UNK
     Route: 065
  3. GRAVOL [Concomitant]
     Indication: ABDOMINAL PAIN
     Dosage: UNK
     Route: 065

REACTIONS (4)
  - Jaundice cholestatic [Not Recovered/Not Resolved]
  - Splenomegaly [Not Recovered/Not Resolved]
  - Transaminases increased [Not Recovered/Not Resolved]
  - Malaise [Recovered/Resolved with Sequelae]
